FAERS Safety Report 6400416-8 (Version None)
Quarter: 2009Q4

REPORT INFORMATION
  Report Type: 
  Country: None (occurrence: None)
  Receive Date: 20091007
  Receipt Date: 20091007
  Transmission Date: 20100525
  Serious: Yes (Other)
  Sender: FDA-Public Use
  Company Number: None

PATIENT
  Age: 35 Year
  Sex: Female
  Weight: 52.1637 kg

DRUGS (3)
  1. YAZ [Suspect]
     Indication: CONTRACEPTION
     Dosage: 1 TABLET QD PO
     Route: 048
     Dates: start: 20090301, end: 20090908
  2. YAZ [Suspect]
     Indication: FLOODING
     Dosage: 1 TABLET QD PO
     Route: 048
     Dates: start: 20090301, end: 20090908
  3. YAZ [Suspect]
     Indication: MIGRAINE
     Dosage: 1 TABLET QD PO
     Route: 048
     Dates: start: 20090301, end: 20090908

REACTIONS (6)
  - ASTIGMATISM [None]
  - CONDITION AGGRAVATED [None]
  - EYE DISORDER [None]
  - EYE PAIN [None]
  - MENOPAUSAL SYMPTOMS [None]
  - MUSCLE SPASMS [None]
